FAERS Safety Report 8520312-X (Version None)
Quarter: 2012Q3

REPORT INFORMATION
  Report Type: 
  Country: None (occurrence: None)
  Receive Date: 20120713
  Receipt Date: 20120713
  Transmission Date: 20120928
  Serious: No
  Sender: FDA-Public Use
  Company Number: None

PATIENT
  Age: 28 Year
  Sex: Female
  Weight: 53.5244 kg

DRUGS (1)
  1. MEDROXYPROGESTERONE [Suspect]
     Indication: CONTRACEPTION
     Dosage: 150MG Q 12 WEEKS
     Dates: start: 20120220, end: 20120412

REACTIONS (1)
  - PREGNANCY WITH INJECTABLE CONTRACEPTIVE [None]
